FAERS Safety Report 12763225 (Version 2)
Quarter: 2016Q3

REPORT INFORMATION
  Report Type: Report from Study
  Country: NL (occurrence: NL)
  Receive Date: 20160920
  Receipt Date: 20160929
  Transmission Date: 20161109
  Serious: Yes (Hospitalization)
  Sender: FDA-Public Use
  Company Number: PHHO2016NL002697

PATIENT
  Age: 56 Year
  Sex: Female
  Weight: 88.2 kg

DRUGS (3)
  1. PREDNISOLONE. [Suspect]
     Active Substance: PREDNISOLONE
     Indication: PRODUCT USED FOR UNKNOWN INDICATION
     Dosage: 5 MG, QD
     Route: 048
     Dates: start: 20151021
  2. PROGRAFT [Suspect]
     Active Substance: TACROLIMUS
     Indication: RENAL TRANSPLANT
     Dosage: 1 MG, BID
     Route: 048
     Dates: start: 20151021
  3. CERTICAN [Suspect]
     Active Substance: EVEROLIMUS
     Indication: RENAL TRANSPLANT
     Dosage: 1.5 MG, BID
     Route: 048
     Dates: start: 20151021

REACTIONS (3)
  - Hepatic cyst infection [Recovering/Resolving]
  - Lymphocele [Recovered/Resolved]
  - Corona virus infection [Recovered/Resolved]

NARRATIVE: CASE EVENT DATE: 20160208
